FAERS Safety Report 4614848-1 (Version None)
Quarter: 2005Q1

REPORT INFORMATION
  Report Type: 
  Country: None (occurrence: None)
  Receive Date: 20050318
  Receipt Date: 20050318
  Transmission Date: 20050727
  Serious: Yes (Other)
  Sender: FDA-Public Use
  Company Number: None

PATIENT
  Age: 20 Year
  Sex: Female
  Weight: 58.9676 kg

DRUGS (1)
  1. KETEK [Suspect]
     Indication: RESPIRATORY DISORDER
     Dosage: 800MG   BID   ORAL
     Route: 048
     Dates: start: 20050126, end: 20050126

REACTIONS (4)
  - DYSPNOEA [None]
  - EMOTIONAL DISTRESS [None]
  - SWELLING FACE [None]
  - SWOLLEN TONGUE [None]
